FAERS Safety Report 4523477-X (Version None)
Quarter: 2004Q4

REPORT INFORMATION
  Report Type: 
  Country: None (occurrence: None)
  Receive Date: 20041117
  Receipt Date: 20040726
  Transmission Date: 20050328
  Serious: Yes (Hospitalization)
  Sender: FDA-Public Use
  Company Number: DE-JNJFOC-20040706781

PATIENT
  Age: 83 Year
  Sex: Male

DRUGS (14)
  1. LEVOFLOXACIN [Suspect]
     Indication: PNEUMONIA
     Dosage: INTRAVENOUS
     Route: 042
     Dates: start: 20031225, end: 20031225
  2. FOLIC ACID [Concomitant]
  3. GLUCOTROL XL [Concomitant]
  4. INSULIN [Concomitant]
  5. MULTIVITAMIN (MULTIVITAMINS) [Concomitant]
  6. THIAMINE (THIAMINE) [Concomitant]
  7. SINEMET [Concomitant]
  8. PEPCID [Concomitant]
  9. KCL (POTASSIUM CHLORIDE) [Concomitant]
  10. ATIVAN [Concomitant]
  11. TYLENOL [Concomitant]
  12. VERSID (MEBENDAZOLE) [Concomitant]
  13. NORCURON [Concomitant]
  14. SUCCINYLCHOLINE CHLORIDE [Concomitant]

REACTIONS (3)
  - CONDITION AGGRAVATED [None]
  - PNEUMONIA [None]
  - RESPIRATORY DISTRESS [None]
